FAERS Safety Report 10570713 (Version 7)
Quarter: 2015Q1

REPORT INFORMATION
  Report Type: Spontaneous
  Country: AT (occurrence: AT)
  Receive Date: 20141107
  Receipt Date: 20150327
  Transmission Date: 20150720
  Serious: Yes (Death, Hospitalization, Other)
  Sender: FDA-Public Use
  Company Number: AT-JNJFOC-20141021730

PATIENT
  Age: 62 Year
  Sex: Female
  Weight: 66 kg

DRUGS (7)
  1. SOVALDI [Suspect]
     Active Substance: SOFOSBUVIR
     Indication: CHRONIC HEPATITIS C
     Route: 048
     Dates: start: 20140904, end: 20141113
  2. OLYSIO [Suspect]
     Active Substance: SIMEPREVIR
     Indication: CHRONIC HEPATITIS C
     Route: 048
     Dates: start: 20140904, end: 20141113
  3. LASIX [Concomitant]
     Active Substance: FUROSEMIDE
     Indication: OEDEMA PERIPHERAL
     Route: 048
     Dates: start: 20141106, end: 20141127
  4. QUANTALAN [Concomitant]
     Active Substance: CHOLESTYRAMINE
  5. REVIA [Concomitant]
     Active Substance: NALTREXONE HYDROCHLORIDE
  6. SPIRONO [Concomitant]
     Indication: OEDEMA PERIPHERAL
     Route: 048
     Dates: start: 20141113, end: 20141127
  7. TILADE [Concomitant]
     Active Substance: NEDOCROMIL SODIUM

REACTIONS (12)
  - Pruritus [Unknown]
  - Jaundice [Unknown]
  - Acute hepatic failure [Fatal]
  - Multi-organ failure [Fatal]
  - Hyperbilirubinaemia [Unknown]
  - Hepatorenal syndrome [Unknown]
  - Sunburn [Unknown]
  - Drug-induced liver injury [Unknown]
  - Ascites [Unknown]
  - Blood bilirubin increased [Unknown]
  - Blood albumin decreased [Unknown]
  - Cholestasis [Unknown]

NARRATIVE: CASE EVENT DATE: 20141113
